FAERS Safety Report 8596125-X (Version None)
Quarter: 2012Q3

REPORT INFORMATION
  Report Type: 
  Country: None (occurrence: None)
  Receive Date: 20120815
  Receipt Date: 20120807
  Transmission Date: 20120928
  Serious: Yes (Hospitalization)
  Sender: FDA-Public Use
  Company Number: US-GLAXOSMITHKLINE-A0989424A

PATIENT
  Sex: Male

DRUGS (4)
  1. BENDAMUSTINE HYDROCHLORIDE [Suspect]
     Indication: B-CELL LYMPHOMA
  2. CARBOPLATIN [Suspect]
     Indication: B-CELL LYMPHOMA
  3. ETOPOSIDE [Suspect]
     Indication: B-CELL LYMPHOMA
  4. OFATUMUMAB [Suspect]
     Indication: B-CELL LYMPHOMA

REACTIONS (2)
  - DYSPHAGIA [None]
  - FEBRILE NEUTROPENIA [None]
